FAERS Safety Report 11508987 (Version 3)
Quarter: 2016Q1

REPORT INFORMATION
  Report Type: Spontaneous
  Country: US (occurrence: US)
  Receive Date: 20150915
  Receipt Date: 20160203
  Transmission Date: 20160525
  Serious: Yes (Death, Hospitalization, Disabling, Other)
  Sender: FDA-Public Use
  Company Number: US-009507513-1509USA007630

PATIENT
  Sex: Female
  Weight: 82.86 kg

DRUGS (1)
  1. JANUVIA [Suspect]
     Active Substance: SITAGLIPTIN PHOSPHATE
     Indication: TYPE 2 DIABETES MELLITUS
     Dosage: 100 MG, QD
     Route: 048
     Dates: start: 20101021, end: 20150602

REACTIONS (23)
  - Hepatic steatosis [Unknown]
  - Anaemia [Unknown]
  - Post procedural haemorrhage [Unknown]
  - Pancreatic carcinoma metastatic [Unknown]
  - Death [Fatal]
  - Lymphangioma [Unknown]
  - Chronic kidney disease [Not Recovered/Not Resolved]
  - Ovarian cyst [Unknown]
  - Acute kidney injury [Unknown]
  - Nephrolithiasis [Unknown]
  - Vertebral lesion [Unknown]
  - Post procedural infection [Unknown]
  - Lymphocele [Unknown]
  - Rash [Unknown]
  - Upper gastrointestinal haemorrhage [Unknown]
  - Renal cyst [Unknown]
  - Joint effusion [Unknown]
  - Metastases to peritoneum [Unknown]
  - Gallbladder polyp [Unknown]
  - Bone cyst [Unknown]
  - Meniscus injury [Not Recovered/Not Resolved]
  - Leukocytosis [Unknown]
  - Dyspepsia [Unknown]

NARRATIVE: CASE EVENT DATE: 2011
